FAERS Safety Report 16576643 (Version 2)
Quarter: 2019Q3

REPORT INFORMATION
  Report Type: Spontaneous
  Country: JP (occurrence: JP)
  Receive Date: 20190716
  Receipt Date: 20190806
  Transmission Date: 20191004
  Serious: Yes (Death, Other)
  Sender: FDA-Public Use
  Company Number: JP-SA-2019SA185955

PATIENT
  Age: 52 Year
  Sex: Male

DRUGS (6)
  1. FLUOROURACIL. [Suspect]
     Active Substance: FLUOROURACIL
     Indication: TONGUE NEOPLASM MALIGNANT STAGE UNSPECIFIED
     Dosage: 750 MG/M2, 5 DAYS
     Route: 065
  2. FLUOROURACIL. [Suspect]
     Active Substance: FLUOROURACIL
     Indication: METASTASES TO LYMPH NODES
  3. DOCETAXEL. [Suspect]
     Active Substance: DOCETAXEL
     Indication: TONGUE NEOPLASM MALIGNANT STAGE UNSPECIFIED
     Dosage: 60 MG/M2
     Route: 041
  4. DOCETAXEL. [Suspect]
     Active Substance: DOCETAXEL
     Indication: METASTASES TO LYMPH NODES
  5. CISPLATIN. [Suspect]
     Active Substance: CISPLATIN
     Indication: METASTASES TO LYMPH NODES
     Dosage: 100 MG/M2
     Route: 065
  6. CISPLATIN. [Suspect]
     Active Substance: CISPLATIN
     Indication: TONGUE NEOPLASM MALIGNANT STAGE UNSPECIFIED
     Dosage: 70 MG/M2
     Route: 065

REACTIONS (19)
  - Malaise [Fatal]
  - Pyrexia [Fatal]
  - Procalcitonin increased [Fatal]
  - Cytopenia [Fatal]
  - Febrile neutropenia [Unknown]
  - Decreased appetite [Fatal]
  - C-reactive protein increased [Fatal]
  - Dyspnoea [Fatal]
  - White blood cell count decreased [Fatal]
  - Feeding disorder [Fatal]
  - Anaemia [Fatal]
  - Chromosome analysis abnormal [Fatal]
  - Abdominal tenderness [Recovering/Resolving]
  - Myelodysplastic syndrome [Fatal]
  - Platelet count decreased [Fatal]
  - Localised oedema [Fatal]
  - Acute respiratory distress syndrome [Fatal]
  - Neutropenic colitis [Recovering/Resolving]
  - Diarrhoea [Recovering/Resolving]

NARRATIVE: CASE EVENT DATE: 2017
